FAERS Safety Report 25858734 (Version 2)
Quarter: 2025Q4

REPORT INFORMATION
  Report Type: Spontaneous
  Country: AU (occurrence: AU)
  Receive Date: 20250929
  Receipt Date: 20251006
  Transmission Date: 20260117
  Serious: Yes (Hospitalization)
  Sender: MYLAN
  Company Number: AU-MYLANLABS-2025M1081225

PATIENT
  Sex: Male

DRUGS (4)
  1. CLOZARIL [Suspect]
     Active Substance: CLOZAPINE
     Indication: Schizoaffective disorder
     Dosage: 25 MILLIGRAM
  2. CLOZARIL [Suspect]
     Active Substance: CLOZAPINE
     Indication: Schizophrenia
     Dosage: 12.5 MILLIGRAM, AM (MANE)
  3. LITHIUM [Concomitant]
     Active Substance: LITHIUM
     Dosage: 250 MILLIGRAM, PM (NOCTE)
  4. ZUCLOPENTHIXOL DECANOATE [Concomitant]
     Active Substance: ZUCLOPENTHIXOL DECANOATE
     Dosage: 200 MILLIGRAM, BIWEEKLY

REACTIONS (3)
  - Hospitalisation [Unknown]
  - Troponin increased [Recovered/Resolved]
  - Orthostatic tachycardia [Not Recovered/Not Resolved]
